FAERS Safety Report 17959902 (Version 1)
Quarter: 2020Q2

REPORT INFORMATION
  Report Type: Spontaneous
  Country: US (occurrence: US)
  Receive Date: 20200629
  Receipt Date: 20200629
  Transmission Date: 20200714
  Serious: Yes (Life-Threatening, Hospitalization)
  Sender: FDA-Public Use
  Company Number: None

PATIENT
  Age: 73 Year
  Sex: Male
  Weight: 115 kg

DRUGS (1)
  1. ACETAMINOPHEN/HYDROCODONE (HYDROCODONE 5MG/ACETAMINOPHEN 325MG TAB) [Suspect]
     Active Substance: ACETAMINOPHEN\HYDROCODONE
     Indication: PAIN
     Route: 048

REACTIONS (5)
  - Hypotension [None]
  - Respiratory depression [None]
  - Bradycardia [None]
  - Accidental overdose [None]
  - Sedation [None]

NARRATIVE: CASE EVENT DATE: 20200614
